FAERS Safety Report 4835901-3 (Version None)
Quarter: 2005Q4

REPORT INFORMATION
  Report Type: 
  Country: None (occurrence: None)
  Receive Date: 20051118
  Receipt Date: 20051108
  Transmission Date: 20060501
  Serious: Yes (Life-Threatening)
  Sender: FDA-Public Use
  Company Number: 218776

PATIENT
  Sex: Female

DRUGS (5)
  1. ACTIVASE [Suspect]
     Indication: VENA CAVA THROMBOSIS
     Dosage: 25 MG, SINGLE, INTRAVENOUS
     Route: 042
     Dates: start: 20051012, end: 20051012
  2. UROKINASE (UROKINASE) [Concomitant]
  3. RANITIC (RANITIDINE) [Concomitant]
  4. TAVEGIL (CLEMASTINE FUMARATE) [Concomitant]
  5. SOLU-DECORTIN (PREDNISOLONE HEMISUCCINATE) [Concomitant]

REACTIONS (3)
  - ANAPHYLACTIC REACTION [None]
  - BLOOD PRESSURE INCREASED [None]
  - HYPOGLYCAEMIA [None]
